FAERS Safety Report 9632630 (Version 2)
Quarter: 2013Q4

REPORT INFORMATION
  Report Type: Spontaneous
  Country: BR (occurrence: BR)
  Receive Date: 20131018
  Receipt Date: 20131204
  Transmission Date: 20140711
  Serious: Yes (Hospitalization)
  Sender: FDA-Public Use
  Company Number: BR-GLAXOSMITHKLINE-A1045923A

PATIENT
  Age: 86 Year
  Sex: Female
  Weight: 80 kg

DRUGS (10)
  1. SERETIDE [Suspect]
     Indication: ASTHMA
     Dosage: 1PUFF TWICE PER DAY
     Route: 065
     Dates: start: 2006, end: 20130723
  2. METFORMIN HYDROCHLORIDE [Concomitant]
  3. BUDECORT [Concomitant]
  4. LOSARTAN [Concomitant]
  5. FUROSEMIDE [Concomitant]
  6. OMEPRAZOLE [Concomitant]
  7. PREDNISONE [Concomitant]
  8. FERROUS SULFATE [Concomitant]
  9. ATROVENT/BEROTEC AEROSOL [Concomitant]
  10. SALINE SOLUTION [Concomitant]

REACTIONS (5)
  - Asthmatic crisis [Recovering/Resolving]
  - Pneumonia [Recovering/Resolving]
  - Bronchitis [Recovering/Resolving]
  - Oxygen supplementation [Unknown]
  - Asthenia [Unknown]
